FAERS Safety Report 6467560-0 (Version None)
Quarter: 2009Q4

REPORT INFORMATION
  Report Type: 
  Country: None (occurrence: None)
  Receive Date: 20091202
  Receipt Date: 20091118
  Transmission Date: 20100525
  Serious: Yes (Other)
  Sender: FDA-Public Use
  Company Number: GB-MYLANLABS-MK-6006729

PATIENT
  Age: 46 Year
  Sex: Male

DRUGS (4)
  1. FLUOXETINE [Suspect]
     Indication: HUNTINGTON'S CHOREA
     Route: 048
     Dates: start: 19990101, end: 19990101
  2. HALOPERIDOL [Concomitant]
     Indication: HUNTINGTON'S CHOREA
     Route: 048
  3. CLOMIPRAMINE [Concomitant]
     Indication: DRUG USE FOR UNKNOWN INDICATION
     Route: 048
  4. RISPERIDONE [Concomitant]
     Indication: CHOREA

REACTIONS (4)
  - DEPRESSION [None]
  - HUNTINGTON'S CHOREA [None]
  - SLEEP DISORDER [None]
  - TEARFULNESS [None]
